FAERS Safety Report 10805450 (Version 1)
Quarter: 2015Q1

REPORT INFORMATION
  Report Type: Report from Study
  Country: US (occurrence: US)
  Receive Date: 20150217
  Receipt Date: 20150217
  Transmission Date: 20150721
  Serious: No
  Sender: FDA-Public Use
  Company Number: US-ABBVIE-14K-163-1262986-00

PATIENT
  Age: 63 Year
  Sex: Male

DRUGS (10)
  1. METHOTREXATE [Suspect]
     Active Substance: METHOTREXATE
     Indication: PRODUCT USED FOR UNKNOWN INDICATION
  2. HUMIRA [Suspect]
     Active Substance: ADALIMUMAB
     Dosage: ONE IN EVERY 5 TO 6 WEEKS
  3. HUMIRA [Suspect]
     Active Substance: ADALIMUMAB
     Dosage: ONE IN EVERY 7 TO 8 WEEKS
  4. UNKNOWN PILL [Concomitant]
     Indication: PROPHYLAXIS
  5. HUMIRA [Suspect]
     Active Substance: ADALIMUMAB
  6. HUMIRA [Suspect]
     Active Substance: ADALIMUMAB
     Dates: start: 2014
  7. UNKNOWN CHOLESTEROL PILL [Concomitant]
     Indication: PRODUCT USED FOR UNKNOWN INDICATION
     Dosage: VERY LOW DOSE
  8. HUMIRA [Suspect]
     Active Substance: ADALIMUMAB
     Indication: PSORIATIC ARTHROPATHY
  9. UNKNOWN PILL [Concomitant]
     Indication: RENAL FAILURE
  10. DIABETIC STUFF [Concomitant]
     Indication: DIABETES MELLITUS

REACTIONS (4)
  - Diabetic neuropathy [Unknown]
  - Hypoaesthesia [Not Recovered/Not Resolved]
  - Psoriatic arthropathy [Unknown]
  - Paraesthesia [Not Recovered/Not Resolved]

NARRATIVE: CASE EVENT DATE: 201407
